FAERS Safety Report 5417933-X (Version None)
Quarter: 2007Q3

REPORT INFORMATION
  Report Type: 
  Country: None (occurrence: None)
  Receive Date: 20070815
  Receipt Date: 20070808
  Transmission Date: 20080115
  Serious: Yes (Hospitalization)
  Sender: FDA-Public Use
  Company Number: GXKR2007GB06816

PATIENT
  Age: 55 Year
  Sex: Female

DRUGS (3)
  1. CITALOPRAM (NGX)(CITALOPRAM) UNKNWON [Suspect]
     Indication: DEPRESSION
     Dosage: 20 MG, QD, ORAL
     Route: 048
     Dates: start: 20050701
  2. IMIPRAMINE [Suspect]
     Indication: DEPRESSION
     Dosage: 25 MG, QD,
     Dates: start: 20060509, end: 20060707
  3. LEVOTHYROXINE SODIUM [Concomitant]

REACTIONS (1)
  - ANGLE CLOSURE GLAUCOMA [None]
